FAERS Safety Report 4364646-1 (Version None)
Quarter: 2004Q2

REPORT INFORMATION
  Report Type: 
  Country: None (occurrence: None)
  Receive Date: 20040521
  Receipt Date: 20040504
  Transmission Date: 20050107
  Serious: Yes (Other)
  Sender: FDA-Public Use
  Company Number: US_0403101911

PATIENT
  Age: 84 Year
  Sex: Female

DRUGS (5)
  1. EVISTA [Suspect]
  2. FOSAMAX [Concomitant]
  3. ACTONEL [Concomitant]
  4. MIACALCIN [Concomitant]
  5. HORMONE REPLACEMENT THERAPY [Concomitant]

REACTIONS (5)
  - FLUID RETENTION [None]
  - FRACTURE [None]
  - FRACTURED SACRUM [None]
  - LUMBAR VERTEBRAL FRACTURE [None]
  - THORACIC VERTEBRAL FRACTURE [None]
